FAERS Safety Report 17120009 (Version 1)
Quarter: 2019Q4

REPORT INFORMATION
  Report Type: Spontaneous
  Country: IT (occurrence: IT)
  Receive Date: 20191206
  Receipt Date: 20191206
  Transmission Date: 20200122
  Serious: Yes (Other)
  Sender: FDA-Public Use
  Company Number: NVSC2019IT055524

PATIENT
  Age: 15 Year
  Sex: Male

DRUGS (9)
  1. ADALIMUMAB [Suspect]
     Active Substance: ADALIMUMAB
     Indication: HIDRADENITIS
     Dosage: 40 MG, QW2
     Route: 058
  2. PREDNISONE. [Concomitant]
     Active Substance: PREDNISONE
     Indication: HIDRADENITIS
     Dosage: 1.2 MG, QD
     Route: 048
  3. PREDNISONE. [Concomitant]
     Active Substance: PREDNISONE
     Indication: SAPHO SYNDROME
  4. METHOTREXATE. [Concomitant]
     Active Substance: METHOTREXATE
     Indication: HIDRADENITIS
     Dosage: 15 MG, QW
     Route: 058
  5. METHOTREXATE. [Concomitant]
     Active Substance: METHOTREXATE
     Indication: ARTHRITIS
  6. ADALIMUMAB [Suspect]
     Active Substance: ADALIMUMAB
     Indication: SAPHO SYNDROME
     Dosage: 40 MG, QW
     Route: 058
  7. ADALIMUMAB [Suspect]
     Active Substance: ADALIMUMAB
     Indication: ARTHRITIS
  8. PREDNISONE. [Concomitant]
     Active Substance: PREDNISONE
     Indication: ARTHRITIS
  9. METHOTREXATE. [Concomitant]
     Active Substance: METHOTREXATE
     Indication: SAPHO SYNDROME

REACTIONS (2)
  - Hidradenitis [Recovered/Resolved]
  - Therapeutic product effect incomplete [Recovered/Resolved]
